FAERS Safety Report 8881963 (Version 2)
Quarter: 2012Q4

REPORT INFORMATION
  Report Type: Report from Study
  Country: ES (occurrence: ES)
  Receive Date: 20121102
  Receipt Date: 20121123
  Transmission Date: 20130627
  Serious: Yes (Hospitalization)
  Sender: FDA-Public Use
  Company Number: ES-SANOFI-AVENTIS-2012SA079871

PATIENT
  Age: 65 Year
  Sex: Female

DRUGS (12)
  1. DOCETAXEL [Suspect]
     Indication: HER-2 POSITIVE BREAST CANCER
     Route: 042
     Dates: start: 20121011
  2. PERTUZUMAB [Suspect]
     Indication: HER-2 POSITIVE BREAST CANCER
     Route: 042
     Dates: start: 20121011
  3. TRASTUZUMAB [Suspect]
     Indication: HER-2 POSITIVE BREAST CANCER
     Route: 042
     Dates: start: 20121011
  4. SUMIAL [Concomitant]
  5. ATORVASTATIN [Concomitant]
     Dates: start: 2002
  6. METFORMIN [Concomitant]
  7. IBUPROFEN [Concomitant]
     Dates: start: 2010
  8. OMEPRAZOLE [Concomitant]
     Route: 065
  9. HYDROSALURIC [Concomitant]
     Dates: start: 2002
  10. LYRICA [Concomitant]
  11. DULOXETINE HYDROCHLORIDE [Concomitant]
  12. OLMESARTAN [Concomitant]
     Dates: start: 2002

REACTIONS (2)
  - Neutropenia [Recovered/Resolved]
  - Stomatitis [Recovered/Resolved]
